FAERS Safety Report 23023283 (Version 1)
Quarter: 2023Q4

REPORT INFORMATION
  Report Type: Report from Study
  Country: NL (occurrence: NL)
  Receive Date: 20231003
  Receipt Date: 20231003
  Transmission Date: 20240109
  Serious: Yes (Hospitalization)
  Sender: FDA-Public Use
  Company Number: NL-ABBVIE-5431218

PATIENT
  Sex: Male

DRUGS (4)
  1. ADALIMUMAB [Suspect]
     Active Substance: ADALIMUMAB
     Indication: Crohn^s disease
     Route: 058
     Dates: start: 2018, end: 2019
  2. AZATHIOPRINE [Suspect]
     Active Substance: AZATHIOPRINE
     Indication: Crohn^s disease
     Route: 065
     Dates: end: 2019
  3. PREDNISONE [Suspect]
     Active Substance: PREDNISONE
     Indication: Crohn^s disease
     Dosage: LOWER AND HIGHER DOSES
     Route: 065
     Dates: start: 2021
  4. VEDOLIZUMAB [Suspect]
     Active Substance: VEDOLIZUMAB
     Indication: Crohn^s disease
     Route: 065
     Dates: start: 2019, end: 2021

REACTIONS (14)
  - Ileocaecal resection [Unknown]
  - Anastomotic leak [Unknown]
  - Osteoporosis [Unknown]
  - Ileal stenosis [Unknown]
  - Large intestinal stenosis [Unknown]
  - Gastrointestinal disorder [Unknown]
  - Crohn^s disease [Unknown]
  - Drug ineffective [Unknown]
  - Drug ineffective [Unknown]
  - Osteopenia [Unknown]
  - Abscess [Unknown]
  - Terminal ileitis [Unknown]
  - Drug ineffective [Not Recovered/Not Resolved]
  - Ileal stenosis [Recovered/Resolved]

NARRATIVE: CASE EVENT DATE: 20180101
